FAERS Safety Report 9222324 (Version 2)
Quarter: 2013Q4

REPORT INFORMATION
  Report Type: Spontaneous
  Country: DK (occurrence: DK)
  Receive Date: 20130410
  Receipt Date: 20131205
  Transmission Date: 20140711
  Serious: Yes (Life-Threatening, Hospitalization)
  Sender: FDA-Public Use
  Company Number: DK-PFIZER INC-2013112361

PATIENT
  Age: 36 Year
  Sex: Female

DRUGS (5)
  1. LYRICA [Suspect]
     Indication: PAIN
     Dosage: STRENGTH: 225 MG
     Route: 048
     Dates: start: 20130301
  2. MORFIN ^DAK^ [Concomitant]
     Dosage: 10 MG, MAXIMUM FOUR TIMES PER DAY
     Dates: start: 20111130
  3. OMEPRAZOL [Concomitant]
     Dosage: 20 MG, UNK
     Dates: start: 20111223
  4. MIANSERIN [Concomitant]
     Dosage: 30 MG, UNK
     Dates: start: 20111223
  5. FENTANYL [Concomitant]
     Dosage: 75-100 UG PER HOUR
     Dates: start: 20111130

REACTIONS (1)
  - Metabolic acidosis [Recovered/Resolved]
